FAERS Safety Report 4438854-5 (Version None)
Quarter: 2004Q3

REPORT INFORMATION
  Report Type: 
  Country: None (occurrence: None)
  Receive Date: 20040901
  Receipt Date: 20040820
  Transmission Date: 20050211
  Serious: Yes (Hospitalization)
  Sender: FDA-Public Use
  Company Number: 200413153FR

PATIENT
  Age: 50 Year
  Sex: Male

DRUGS (8)
  1. FLAGYL [Suspect]
     Indication: ANAL ABSCESS
     Route: 048
     Dates: start: 20040218, end: 20040407
  2. FLAGYL [Suspect]
     Indication: RECTAL ABSCESS
     Route: 048
     Dates: start: 20040218, end: 20040407
  3. SOLUPRED [Suspect]
     Indication: CROHN'S DISEASE
     Route: 048
  4. CIPROFLOXACIN [Concomitant]
     Indication: ANAL ABSCESS
     Route: 048
     Dates: start: 20040324, end: 20040407
  5. CIPROFLOXACIN [Concomitant]
     Indication: RECTAL ABSCESS
     Route: 048
     Dates: start: 20040324, end: 20040407
  6. IMUREL [Concomitant]
     Indication: CROHN'S DISEASE
     Route: 048
  7. DIFFU K [Concomitant]
     Route: 048
     Dates: start: 20040218, end: 20040422
  8. OROCAL VITAMINE D3 [Concomitant]
     Route: 048
     Dates: start: 20040218, end: 20040422

REACTIONS (7)
  - DIABETES MELLITUS [None]
  - HYPOREFLEXIA [None]
  - MONONEURITIS [None]
  - PARAESTHESIA [None]
  - PARALYSIS [None]
  - PERIPHERAL NERVE INJURY [None]
  - THERAPEUTIC AGENT TOXICITY [None]
